FAERS Safety Report 10143747 (Version 1)
Quarter: 2014Q2

REPORT INFORMATION
  Report Type: Spontaneous
  Country: DE (occurrence: DE)
  Receive Date: 20140430
  Receipt Date: 20140430
  Transmission Date: 20141212
  Serious: Yes (Hospitalization)
  Sender: FDA-Public Use
  Company Number: DE-GLAXOSMITHKLINE-D0083788A

PATIENT
  Age: 30 Year
  Sex: Female

DRUGS (1)
  1. BENLYSTA [Suspect]
     Indication: SYSTEMIC LUPUS ERYTHEMATOSUS
     Route: 042

REACTIONS (5)
  - Serositis [Unknown]
  - Nervous system disorder [Unknown]
  - Renal disorder [Unknown]
  - Skin disorder [Unknown]
  - Drug ineffective [Unknown]
